FAERS Safety Report 10708179 (Version 1)
Quarter: 2015Q1

REPORT INFORMATION
  Report Type: Spontaneous
  Country: NL (occurrence: NL)
  Receive Date: 20150113
  Receipt Date: 20150113
  Transmission Date: 20150721
  Serious: Yes (Other)
  Sender: FDA-Public Use
  Company Number: NL-BAXTER-2015BAX000886

PATIENT
  Age: 38 Year
  Sex: Female

DRUGS (2)
  1. SODIUM-2-MERCAPTOETHANE SULFONATE [Concomitant]
     Indication: LEIOMYOSARCOMA
     Route: 065
  2. HOLOXAN, POEDER VOOR OPLOSSING VOOR INFUSIE [Suspect]
     Active Substance: IFOSFAMIDE
     Indication: LEIOMYOSARCOMA
     Route: 042

REACTIONS (2)
  - General physical health deterioration [Unknown]
  - Encephalopathy [Recovered/Resolved]
